FAERS Safety Report 7325063-5 (Version None)
Quarter: 2011Q1

REPORT INFORMATION
  Report Type: 
  Country: None (occurrence: None)
  Receive Date: 20110302
  Receipt Date: 20110222
  Transmission Date: 20110831
  Serious: Yes (Hospitalization)
  Sender: FDA-Public Use
  Company Number: US-BIOGENIDEC-2009BI011893

PATIENT
  Age: 22 Year
  Sex: Female

DRUGS (5)
  1. TYSABRI [Suspect]
     Route: 042
     Dates: start: 20101104
  2. AVONEX [Concomitant]
     Route: 030
     Dates: start: 20100101, end: 20100101
  3. COPAXONE [Concomitant]
     Dates: start: 20100101, end: 20100101
  4. TYSABRI [Suspect]
     Indication: MULTIPLE SCLEROSIS
     Route: 042
     Dates: start: 20090122, end: 20090429
  5. AVONEX [Concomitant]
     Indication: MULTIPLE SCLEROSIS
     Route: 030
     Dates: start: 20060714

REACTIONS (9)
  - DYSPNOEA [None]
  - ASTHENIA [None]
  - MUSCULAR WEAKNESS [None]
  - HEADACHE [None]
  - COUGH [None]
  - PAIN [None]
  - PNEUMONIA [None]
  - PAIN IN EXTREMITY [None]
  - PULMONARY EMBOLISM [None]
